FAERS Safety Report 6878144-4 (Version None)
Quarter: 2010Q2

REPORT INFORMATION
  Report Type: 
  Country: None (occurrence: None)
  Receive Date: 20100617
  Receipt Date: 20090824
  Transmission Date: 20101027
  Serious: Yes (Other)
  Sender: FDA-Public Use
  Company Number: 20090386

PATIENT
  Age: 39 Year
  Sex: Female

DRUGS (5)
  1. CYANOCOBALAMIN INJ [Suspect]
     Indication: VITAMIN B12 DEFICIENCY
     Dosage: 1 ML X 4 DOSES IN 8
     Dates: start: 20090810, end: 20090817
  2. KLONOPIN [Concomitant]
  3. NEXIUM [Concomitant]
  4. PREMARIN [Concomitant]
  5. SYNTHROID [Concomitant]

REACTIONS (1)
  - ANAPHYLACTOID REACTION [None]
